FAERS Safety Report 7101949-1 (Version None)
Quarter: 2010Q4

REPORT INFORMATION
  Report Type: 
  Country: None (occurrence: None)
  Receive Date: 20101115
  Receipt Date: 20101101
  Transmission Date: 20110411
  Serious: Yes (Other)
  Sender: FDA-Public Use
  Company Number: US-GENZYME-FLUD-1000333

PATIENT
  Age: 15 Month
  Sex: Male

DRUGS (5)
  1. FLUDARA [Suspect]
     Indication: BONE MARROW CONDITIONING REGIMEN
     Dosage: 25 MG/M2 ON DAYS 5 TO 3 BEFORE TRANSPLANT
     Route: 042
  2. CYCLOPHOSPHAMIDE [Suspect]
     Indication: BONE MARROW CONDITIONING REGIMEN
     Dosage: 50 MG/KG ON DAYS 5 TO 2 BEFORE TRANSPLANT
     Route: 042
  3. BUSULFAN [Suspect]
     Indication: BONE MARROW CONDITIONING REGIMEN
     Dosage: QID ON DAYS 9 THRU 6 BEFORE TRANSPLANT
     Route: 042
  4. CYCLOSPORINE [Concomitant]
     Indication: PROPHYLAXIS AGAINST GRAFT VERSUS HOST DISEASE
     Dosage: GIVEN ON DAY 3 BEFORE TRANSPLANT TO DAY 100 AFTER TRANSPLANT, WITH DOSE TAPERING BY 10% EACH WEEK
     Route: 065
  5. MYCOPHENOLATE MOFETIL [Concomitant]
     Indication: PROPHYLAXIS AGAINST GRAFT VERSUS HOST DISEASE
     Dosage: 15 MG/KG ON DAY 3 BEFORE TRANSPLANT TO DAY 45 AFTER TRANSPLANT
     Route: 065

REACTIONS (2)
  - HYPERBILIRUBINAEMIA [None]
  - MUCOSAL INFLAMMATION [None]
